FAERS Safety Report 22678794 (Version 2)
Quarter: 2024Q1

REPORT INFORMATION
  Report Type: Spontaneous
  Country: CA (occurrence: CA)
  Receive Date: 20230706
  Receipt Date: 20240110
  Transmission Date: 20240410
  Serious: No
  Sender: FDA-Public Use
  Company Number: CA-BIOMARINAP-CA-2023-151279

PATIENT

DRUGS (1)
  1. VIMIZIM [Suspect]
     Active Substance: ELOSULFASE ALFA
     Indication: Mucopolysaccharidosis IV
     Dosage: 35 MILLIGRAM, QW
     Route: 042
     Dates: start: 20210325

REACTIONS (8)
  - Aortic dilatation [Unknown]
  - Atlantoaxial instability [Unknown]
  - Fatigue [Unknown]
  - Anxiety [Unknown]
  - Body height decreased [Unknown]
  - Cough [Unknown]
  - Illness [Unknown]
  - Movement disorder [Unknown]

NARRATIVE: CASE EVENT DATE: 20220901
